FAERS Safety Report 5308855-3 (Version None)
Quarter: 2007Q2

REPORT INFORMATION
  Report Type: 
  Country: None (occurrence: None)
  Receive Date: 20070419
  Receipt Date: 20070406
  Transmission Date: 20071010
  Serious: Yes (Hospitalization, Other)
  Sender: FDA-Public Use
  Company Number: AECAN200700049

PATIENT
  Age: 63 Year
  Sex: Male
  Weight: 77.1115 kg

DRUGS (10)
  1. GAMUNEX [Suspect]
     Indication: POLYMYOSITIS
     Dosage: 100 ML; IV
     Route: 042
     Dates: start: 20060921, end: 20060921
  2. IGIVINEX - TALECRIS (IMMUNE GLOBULIN IV (HUMAN),  CAPRYLATE/CHROMATOGR [Suspect]
     Dosage: 400 ML; IV
     Route: 042
     Dates: start: 20060921, end: 20060921
  3. PREDNISONE (CON.) [Concomitant]
  4. FOSAMAX (CON.) [Concomitant]
  5. CALCIUM (CON.) [Concomitant]
  6. VITAMIN D /00318501/ (CON.) [Concomitant]
  7. K-DUR (CON.) [Concomitant]
  8. ASA (CON.) [Concomitant]
  9. NAPROSYN /00256202/ (CON.) [Concomitant]
  10. LASIX /00032601/ (CON.) [Concomitant]

REACTIONS (2)
  - DEEP VEIN THROMBOSIS [None]
  - DISEASE RECURRENCE [None]
